FAERS Safety Report 14304135 (Version 1)
Quarter: 2017Q4

REPORT INFORMATION
  Report Type: Spontaneous
  Country: JP (occurrence: JP)
  Receive Date: 20171219
  Receipt Date: 20171219
  Transmission Date: 20180321
  Serious: Yes (Hospitalization, Other)
  Sender: FDA-Public Use
  Company Number: JP-OTSUKA-JP-2014-13374

PATIENT
  Age: 15 Year
  Sex: Male

DRUGS (4)
  1. ABILIFY [Suspect]
     Active Substance: ARIPIPRAZOLE
     Indication: OFF LABEL USE
     Dosage: 4 MG, QD
     Route: 048
     Dates: start: 20130228
  2. ABILIFY [Suspect]
     Active Substance: ARIPIPRAZOLE
     Indication: AUTISM SPECTRUM DISORDER
     Dosage: 4 MG, QD
     Route: 048
     Dates: start: 20090507, end: 20110728
  3. ABILIFY [Suspect]
     Active Substance: ARIPIPRAZOLE
     Dosage: 4 MG, QD
     Route: 048
     Dates: start: 20140320, end: 20140421
  4. ABILIFY [Suspect]
     Active Substance: ARIPIPRAZOLE
     Indication: AUTISM SPECTRUM DISORDER
     Dosage: DRUG INTRPTD ON 28JUL2011  RESTARTED ON 28FEB2013  RESTRTD ON 20MAR14  STPD ON 21APR14.
     Route: 048
     Dates: start: 20090507, end: 20140421

REACTIONS (2)
  - Off label use [Unknown]
  - Diabetes mellitus [Recovering/Resolving]

NARRATIVE: CASE EVENT DATE: 20140407
